FAERS Safety Report 9495290 (Version 1)
Quarter: 2013Q3

REPORT INFORMATION
  Report Type: Spontaneous
  Country: TW (occurrence: TW)
  Receive Date: 20130903
  Receipt Date: 20130903
  Transmission Date: 20140515
  Serious: Yes (Other)
  Sender: FDA-Public Use
  Company Number: TW-ROXANE LABORATORIES, INC.-2013-RO-01448RO

PATIENT
  Age: 37 Year
  Sex: Female

DRUGS (2)
  1. LITHIUM CARBONATE [Suspect]
     Indication: BIPOLAR I DISORDER
     Dosage: 900 MG
  2. RISPERIDONE [Suspect]
     Indication: BIPOLAR I DISORDER
     Dosage: 8 MG

REACTIONS (1)
  - Drug eruption [Recovered/Resolved]
